FAERS Safety Report 8523602-X (Version None)
Quarter: 2012Q3

REPORT INFORMATION
  Report Type: 
  Country: None (occurrence: None)
  Receive Date: 20120720
  Receipt Date: 20120713
  Transmission Date: 20120928
  Serious: Yes (Hospitalization)
  Sender: FDA-Public Use
  Company Number: US-BAYER-2012-071662

PATIENT
  Age: 35 Year
  Sex: Female

DRUGS (5)
  1. YASMIN [Suspect]
  2. PROVIGIL [Concomitant]
     Dosage: 200 MG, DAILY
     Route: 048
  3. ROXICODONE [Concomitant]
     Dosage: UNK UNK, PRN
  4. ADDERALL 5 [Concomitant]
  5. DEXTROAMPHETAMINE SULFATE [Concomitant]
     Dosage: 30 MG, UNK
     Route: 048

REACTIONS (2)
  - PULMONARY EMBOLISM [None]
  - DEEP VEIN THROMBOSIS [None]
